FAERS Safety Report 22073805 (Version 1)
Quarter: 2023Q1

REPORT INFORMATION
  Report Type: Spontaneous
  Country: GB (occurrence: GB)
  Receive Date: 20230308
  Receipt Date: 20230308
  Transmission Date: 20230417
  Serious: Yes (Other)
  Sender: FDA-Public Use
  Company Number: GB-PFIZER INC-PV202300044257

PATIENT
  Age: 78 Year
  Sex: Female

DRUGS (11)
  1. IBRANCE [Suspect]
     Active Substance: PALBOCICLIB
     Dosage: 125 MG
     Route: 048
  2. IBRANCE [Suspect]
     Active Substance: PALBOCICLIB
     Dosage: UNK
  3. LETROZOLE [Concomitant]
     Active Substance: LETROZOLE
  4. CALCIUM CARBONATE\CHOLECALCIFEROL [Concomitant]
     Active Substance: CALCIUM CARBONATE\CHOLECALCIFEROL
  5. DENOSUMAB [Concomitant]
     Active Substance: DENOSUMAB
  6. LANSOPRAZOLE [Concomitant]
     Active Substance: LANSOPRAZOLE
     Dosage: 30 MG
  7. TICAGRELOR [Concomitant]
     Active Substance: TICAGRELOR
     Dosage: 90 MG
  8. ASPIRIN DISPER [Concomitant]
     Dosage: 75MG
  9. ATORVASTATIN [Concomitant]
     Active Substance: ATORVASTATIN
     Dosage: 80 MG
  10. BISACODYL [Concomitant]
     Active Substance: BISACODYL
     Dosage: AT NIGHT
  11. DOCUSATE [Concomitant]
     Active Substance: DOCUSATE
     Dosage: 100 MG

REACTIONS (2)
  - Myocardial infarction [Recovered/Resolved]
  - Epistaxis [Unknown]

NARRATIVE: CASE EVENT DATE: 20221006
